FAERS Safety Report 13366477 (Version 1)
Quarter: 2017Q1

REPORT INFORMATION
  Report Type: Report from Study
  Country: None (occurrence: TR)
  Receive Date: 20170323
  Receipt Date: 20170323
  Transmission Date: 20170429
  Serious: Yes (Hospitalization)
  Sender: FDA-Public Use
  Company Number: TR-ABBVIE-17P-161-1918479-00

PATIENT
  Age: 53 Year
  Sex: Male
  Weight: 87 kg

DRUGS (5)
  1. CINACALCET(MIMPERA) [Concomitant]
     Indication: END STAGE RENAL DISEASE
     Route: 048
     Dates: start: 20110701
  2. VITAMIN C(REDOXON) [Concomitant]
     Indication: END STAGE RENAL DISEASE
     Route: 042
     Dates: start: 20090401
  3. PARICALCITOL. [Suspect]
     Active Substance: PARICALCITOL
     Indication: END STAGE RENAL DISEASE
     Route: 065
  4. LANSOPRAZOL(LANSOR) [Concomitant]
     Indication: END STAGE RENAL DISEASE
     Dosage: AS NEEDED
     Route: 048
     Dates: start: 20080301
  5. SEVELAMER(RENAGEL) [Concomitant]
     Indication: END STAGE RENAL DISEASE
     Route: 048
     Dates: start: 20110701

REACTIONS (1)
  - Endoscopy [Recovered/Resolved]

NARRATIVE: CASE EVENT DATE: 20120406
